FAERS Safety Report 17928009 (Version 2)
Quarter: 2020Q4

REPORT INFORMATION
  Report Type: Spontaneous
  Country: JP (occurrence: JP)
  Receive Date: 20200623
  Receipt Date: 20201208
  Transmission Date: 20210113
  Serious: Yes (Death, Other)
  Sender: FDA-Public Use
  Company Number: JP-ASTELLAS-2020JP008700

PATIENT
  Age: 9 Decade
  Sex: Female

DRUGS (2)
  1. XOSPATA [Suspect]
     Active Substance: GILTERITINIB
     Indication: ACUTE MYELOID LEUKAEMIA
     Route: 048
     Dates: start: 20200222, end: 20200317
  2. XOSPATA [Suspect]
     Active Substance: GILTERITINIB
     Route: 048
     Dates: start: 20200318, end: 20200507

REACTIONS (4)
  - Disseminated tuberculosis [Fatal]
  - Altered state of consciousness [Fatal]
  - Death [Fatal]
  - Pyrexia [Fatal]

NARRATIVE: CASE EVENT DATE: 20200321
